FAERS Safety Report 6663671-5 (Version None)
Quarter: 2010Q1

REPORT INFORMATION
  Report Type: 
  Country: None (occurrence: None)
  Receive Date: 20100331
  Receipt Date: 20100331
  Transmission Date: 20100710
  Serious: Yes (Life-Threatening)
  Sender: FDA-Public Use
  Company Number: None

PATIENT
  Age: 76 Year
  Sex: Female
  Weight: 69.8539 kg

DRUGS (1)
  1. LYMPHAZURIN [Suspect]
     Indication: MASTECTOMY
     Dosage: 5ML/BREAST ONCE TRANSMAMMARY
     Route: 063
     Dates: start: 20100223, end: 20100223

REACTIONS (1)
  - ANAPHYLACTIC SHOCK [None]
